FAERS Safety Report 22170898 (Version 3)
Quarter: 2023Q2

REPORT INFORMATION
  Report Type: Report from Study
  Country: US (occurrence: US)
  Receive Date: 20230404
  Receipt Date: 20230612
  Transmission Date: 20230721
  Serious: No
  Sender: FDA-Public Use
  Company Number: US-002147023-NVSC2023US073768

PATIENT
  Sex: Female
  Weight: 107.48 kg

DRUGS (4)
  1. COSENTYX [Suspect]
     Active Substance: SECUKINUMAB
     Indication: Product used for unknown indication
     Dosage: UNK
     Route: 065
  2. ATORVASTATIN [Suspect]
     Active Substance: ATORVASTATIN
     Indication: Product used for unknown indication
     Dosage: 10 MG, QD
     Route: 048
  3. METFORMIN [Suspect]
     Active Substance: METFORMIN HYDROCHLORIDE
     Indication: Product used for unknown indication
     Dosage: 500 MG, QD
     Route: 048
  4. ASPIRIN [Suspect]
     Active Substance: ASPIRIN
     Indication: Product used for unknown indication
     Dosage: 81 MG, QD
     Route: 048

REACTIONS (10)
  - Skin mass [Unknown]
  - Rash [Unknown]
  - Skin lesion [Unknown]
  - Skin irritation [Unknown]
  - Psoriasis [Not Recovered/Not Resolved]
  - Rash erythematous [Unknown]
  - Arthralgia [Unknown]
  - Lichenification [Unknown]
  - Intertrigo [Unknown]
  - Seborrhoeic keratosis [Unknown]
